FAERS Safety Report 17185702 (Version 1)
Quarter: 2019Q4

REPORT INFORMATION
  Report Type: Spontaneous
  Country: US (occurrence: US)
  Receive Date: 20191220
  Receipt Date: 20191220
  Transmission Date: 20200122
  Serious: Yes (Other)
  Sender: FDA-Public Use
  Company Number: US-ZYDUS-044660

PATIENT
  Age: 17 Year
  Sex: Male

DRUGS (6)
  1. BENZATROPINE/BENZATROPINE MESILATE [Suspect]
     Active Substance: BENZTROPINE
     Indication: PROPHYLAXIS
     Dosage: RESTARTED WITH LOWER DOSE AND THEN WITH OPTIMAL DOSE
  2. LITHIUM. [Suspect]
     Active Substance: LITHIUM
     Indication: BIPOLAR DISORDER
     Dosage: RE-STARTED WITH LOWER DOSE AND THEN IN OPTIMAL DOSE
  3. HALOPERIDOL. [Suspect]
     Active Substance: HALOPERIDOL
     Indication: BIPOLAR DISORDER
     Dosage: RE-STARTED WITH LOWER DOSE AND THEN ON OPTIMAL DOSE
  4. BENZATROPINE/BENZATROPINE MESILATE [Suspect]
     Active Substance: BENZTROPINE
     Indication: PROPHYLAXIS
  5. HALOPERIDOL. [Suspect]
     Active Substance: HALOPERIDOL
     Indication: BIPOLAR DISORDER
  6. LITHIUM. [Suspect]
     Active Substance: LITHIUM
     Indication: BIPOLAR DISORDER

REACTIONS (3)
  - Hyperprolactinaemia [Recovered/Resolved]
  - Drug interaction [Unknown]
  - Urinary tract obstruction [Unknown]
